FAERS Safety Report 22362483 (Version 9)
Quarter: 2024Q4

REPORT INFORMATION
  Report Type: Report from Study
  Country: NL (occurrence: NL)
  Receive Date: 20230524
  Receipt Date: 20241227
  Transmission Date: 20250114
  Serious: Yes (Hospitalization, Other)
  Sender: ABBVIE
  Company Number: NL-ABBVIE-5176968

PATIENT
  Age: 70 Year
  Sex: Male

DRUGS (18)
  1. CARBIDOPA\LEVODOPA [Suspect]
     Active Substance: CARBIDOPA\LEVODOPA
     Indication: Parkinson^s disease
     Dosage: REMAINS AT 16 HOURS
     Route: 050
     Dates: start: 20091105
  2. CARBIDOPA\LEVODOPA [Suspect]
     Active Substance: CARBIDOPA\LEVODOPA
     Dosage: REMAINS AT 24 HOURS, FIRST ADMIN DATE AND LAST ADMIN DATE: 2024
     Route: 050
  3. CARBIDOPA\LEVODOPA [Suspect]
     Active Substance: CARBIDOPA\LEVODOPA
     Dosage: MD: 3.0ML, CD: 4.4ML/H, ED: 1.50ML, ND: 4.5ML, CND: 2.2ML/H, END: 1.50ML?REMAINS AT 24 HOURS
     Route: 050
     Dates: start: 20240508, end: 20241028
  4. CARBIDOPA\LEVODOPA [Suspect]
     Active Substance: CARBIDOPA\LEVODOPA
     Dosage: MD: 3.0ML, CD: 4.4ML/H, ED: 1.50ML, ND: 4.5ML, CND: 2.2ML/H, END: 1.50ML?REMAINS AT 24 HOURS, LAS...
     Route: 050
     Dates: start: 20241028, end: 20241028
  5. CARBIDOPA\LEVODOPA [Suspect]
     Active Substance: CARBIDOPA\LEVODOPA
     Dosage: REMAINS AT 24 HOURS
     Route: 050
     Dates: end: 20230703
  6. CARBIDOPA\LEVODOPA [Suspect]
     Active Substance: CARBIDOPA\LEVODOPA
     Dosage: MD: 4.5ML; END; 1.5ML; CND: 2.2ML/H?REMAINS AT 24 HOURS, FIRST ADMIN DATE AND LAST ADMIN DATE: 2024
     Route: 050
  7. CARBIDOPA\LEVODOPA [Suspect]
     Active Substance: CARBIDOPA\LEVODOPA
     Dosage: MD 3.0 ML; CD 4.3 ML/H; ED 1.5 ML?REMAINS AT 24 HOURS
     Route: 050
     Dates: start: 20230705, end: 20230714
  8. CARBIDOPA\LEVODOPA [Suspect]
     Active Substance: CARBIDOPA\LEVODOPA
     Dosage: MD 3.0 ML; CD 4.4 ML/H; ED 1.5 ML?REMAINS AT 24 HOURS
     Route: 050
     Dates: start: 20230714
  9. CARBIDOPA\LEVODOPA [Suspect]
     Active Substance: CARBIDOPA\LEVODOPA
     Dosage: MD: 3.0ML;CD: 4.3ML/H; ED; 1.5ML, FIRST ADMIN DATE: 2024
     Route: 050
  10. CARBIDOPA\LEVODOPA [Suspect]
     Active Substance: CARBIDOPA\LEVODOPA
     Dosage: MD: 3.0 ML, CD: 4.6 (ML/H), ED: 1.50 ML, REMAINS AT 24
     Route: 050
     Dates: start: 20241114, end: 20241114
  11. CARBIDOPA\LEVODOPA [Suspect]
     Active Substance: CARBIDOPA\LEVODOPA
     Dosage: MD: 4.5 ML, CD: 2.4 (ML/H), ED: 1.50 ML, REMAINS AT 24
     Route: 050
     Dates: start: 20241113, end: 20241113
  12. CARBIDOPA\LEVODOPA [Suspect]
     Active Substance: CARBIDOPA\LEVODOPA
     Dosage: MD: 4.5 ML;CD: 2.2 ML/H; ED; 1.5ML, REMAINS AT 24
     Route: 050
     Dates: start: 20241028, end: 20241028
  13. CARBIDOPA\LEVODOPA [Suspect]
     Active Substance: CARBIDOPA\LEVODOPA
     Dosage: MD: 3.0 ML;CD: 4.4 ML/H; ED; 1.5ML, REMAINS AT 24
     Route: 050
     Dates: start: 20241028, end: 20241028
  14. MICONAZOLE NITRATE [Concomitant]
     Active Substance: MICONAZOLE NITRATE
     Indication: Product used for unknown indication
  15. CLOZAPINE [Concomitant]
     Active Substance: CLOZAPINE
     Indication: Product used for unknown indication
  16. PAROXETINE [Concomitant]
     Active Substance: PAROXETINE
     Indication: Product used for unknown indication
  17. SILVER NITRATE [Concomitant]
     Active Substance: SILVER NITRATE
     Indication: Product used for unknown indication
  18. POLYETHYLENE GLYCOLS [Concomitant]
     Active Substance: POLYETHYLENE GLYCOLS
     Indication: Bowel movement irregularity

REACTIONS (30)
  - Brain injury [Not Recovered/Not Resolved]
  - Freezing phenomenon [Not Recovered/Not Resolved]
  - Dystonia [Not Recovered/Not Resolved]
  - Stoma site irritation [Recovered/Resolved]
  - Dyskinesia [Not Recovered/Not Resolved]
  - Overdose [Not Recovered/Not Resolved]
  - Adverse drug reaction [Not Recovered/Not Resolved]
  - Muscle spasms [Not Recovered/Not Resolved]
  - Bradykinesia [Not Recovered/Not Resolved]
  - Underdose [Not Recovered/Not Resolved]
  - Gastrointestinal infection [Not Recovered/Not Resolved]
  - Disinhibition [Not Recovered/Not Resolved]
  - Stoma site reaction [Not Recovered/Not Resolved]
  - On and off phenomenon [Not Recovered/Not Resolved]
  - Obsessive-compulsive disorder [Not Recovered/Not Resolved]
  - Surgery [Unknown]
  - Stoma site irritation [Recovering/Resolving]
  - Loss of personal independence in daily activities [Not Recovered/Not Resolved]
  - Incorrect product administration duration [Unknown]
  - Stoma site erythema [Not Recovered/Not Resolved]
  - Unevaluable event [Not Recovered/Not Resolved]
  - Pain [Not Recovered/Not Resolved]
  - Device dislocation [Unknown]
  - Cognitive disorder [Not Recovered/Not Resolved]
  - Gait disturbance [Recovering/Resolving]
  - Fatigue [Not Recovered/Not Resolved]
  - Stoma site discharge [Not Recovered/Not Resolved]
  - Dizziness [Not Recovered/Not Resolved]
  - Malaise [Not Recovered/Not Resolved]
  - Device issue [Unknown]

NARRATIVE: CASE EVENT DATE: 20230101
